FAERS Safety Report 8439412-8 (Version None)
Quarter: 2012Q2

REPORT INFORMATION
  Report Type: 
  Country: None (occurrence: None)
  Receive Date: 20120615
  Receipt Date: 20120605
  Transmission Date: 20120825
  Serious: Yes (Other)
  Sender: FDA-Public Use
  Company Number: JP-UCBSA-054826

PATIENT
  Age: 60 Year
  Sex: Male

DRUGS (3)
  1. RISPERDAL [Suspect]
     Route: 048
  2. KEPPRA [Suspect]
     Indication: EPILEPSY
     Dosage: STRENGTH: 500MG
     Route: 048
  3. VALPROATE SODIUM [Suspect]
     Route: 048

REACTIONS (1)
  - PLATELET COUNT DECREASED [None]
